FAERS Safety Report 9539987 (Version 2)
Quarter: 2013Q4

REPORT INFORMATION
  Report Type: Spontaneous
  Country: US (occurrence: US)
  Receive Date: 20130920
  Receipt Date: 20131029
  Transmission Date: 20140711
  Serious: No
  Sender: FDA-Public Use
  Company Number: US-009507513-1309USA009266

PATIENT
  Age: 42 Year
  Sex: Female

DRUGS (3)
  1. JANUVIA [Suspect]
     Indication: DIABETES MELLITUS
     Dosage: 100 MG, QD
     Route: 048
     Dates: start: 201307, end: 2013
  2. NEXIUM [Concomitant]
     Dosage: 40 MG, QD
  3. AZOGEN [Concomitant]
     Dosage: 100/50 MG, BID
     Route: 055

REACTIONS (2)
  - Oral discomfort [Recovered/Resolved]
  - Lip discolouration [Recovered/Resolved]
